FAERS Safety Report 7569296-1 (Version None)
Quarter: 2011Q2

REPORT INFORMATION
  Report Type: 
  Country: None (occurrence: None)
  Receive Date: 20110623
  Receipt Date: 20110620
  Transmission Date: 20111010
  Serious: Yes (Hospitalization, Other)
  Sender: FDA-Public Use
  Company Number: SE-PFIZER INC-2011041093

PATIENT
  Age: 64 Year
  Sex: Female

DRUGS (5)
  1. PREDNISOLONE [Suspect]
     Indication: MUSCULOSKELETAL PAIN
     Dosage: 40 MG, DAILY
     Dates: start: 20000101
  2. PREDNISOLONE [Suspect]
     Dosage: 20 MG, DAILY
     Dates: end: 20110201
  3. PREDNISOLONE [Suspect]
     Dosage: 10 MG, DAILY
     Dates: start: 20110201
  4. PRASTERONE [Concomitant]
     Dosage: UNK
  5. NALOXONE/OXYCODONE [Concomitant]
     Dosage: UNK

REACTIONS (20)
  - SKIN ATROPHY [None]
  - IMMUNE SYSTEM DISORDER [None]
  - ADRENAL DISORDER [None]
  - EXOPHTHALMOS [None]
  - DYSPHONIA [None]
  - NAUSEA [None]
  - SEPSIS [None]
  - VESSEL PUNCTURE SITE REACTION [None]
  - FAT REDISTRIBUTION [None]
  - PREMATURE AGEING [None]
  - POLYNEUROPATHY [None]
  - IMMOBILE [None]
  - SUICIDAL IDEATION [None]
  - MENTAL IMPAIRMENT [None]
  - URINE OUTPUT INCREASED [None]
  - FUNGAL INFECTION [None]
  - ARTHROPATHY [None]
  - OSTEOPOROSIS [None]
  - ERYTHEMA [None]
  - DRY MOUTH [None]
